FAERS Safety Report 7294402-6 (Version None)
Quarter: 2011Q1

REPORT INFORMATION
  Report Type: 
  Country: None (occurrence: None)
  Receive Date: 20110215
  Receipt Date: 20110204
  Transmission Date: 20110831
  Serious: Yes (Death, Life-Threatening, Other)
  Sender: FDA-Public Use
  Company Number: JP-AMGEN-JPNCT2010008248

PATIENT
  Age: 90 Year
  Sex: Male
  Weight: 47 kg

DRUGS (7)
  1. MEXITIL [Concomitant]
     Route: 048
  2. ASPIRIN [Concomitant]
     Route: 048
  3. HARNAL D [Concomitant]
     Route: 048
  4. PANALDINE [Concomitant]
     Route: 048
  5. NITROL [Concomitant]
     Route: 048
  6. PANITUMUMAB [Suspect]
     Indication: COLORECTAL CANCER
     Dosage: 6 MG/KG, Q2WK
     Route: 041
     Dates: start: 20101020, end: 20101117
  7. LASIX [Concomitant]
     Route: 048

REACTIONS (2)
  - INTERSTITIAL LUNG DISEASE [None]
  - DEATH [None]
